FAERS Safety Report 4601936-9 (Version None)
Quarter: 2005Q1

REPORT INFORMATION
  Report Type: 
  Country: None (occurrence: None)
  Receive Date: 20050201
  Receipt Date: 20040212
  Transmission Date: 20050727
  Serious: Yes (Other)
  Sender: FDA-Public Use
  Company Number: 200412487BWH

PATIENT
  Age: 43 Year
  Sex: Female
  Weight: 90.7194 kg

DRUGS (7)
  1. AVELOX [Suspect]
     Indication: TRACHEOBRONCHITIS
     Dosage: 400 MG, QD, ORAL
     Route: 048
     Dates: start: 20040130, end: 20040202
  2. RHINOCORT [Concomitant]
  3. ALLEGRA-D /OLD FORM/ [Concomitant]
  4. NASACORT [Concomitant]
  5. MAXAIR [Concomitant]
  6. SINGULAIR [Concomitant]
  7. PHENYLPROPANOLAMINE HCL W/ GUAIFENESIN [Concomitant]

REACTIONS (7)
  - ANAPHYLACTIC REACTION [None]
  - ANGIONEUROTIC OEDEMA [None]
  - DYSPHAGIA [None]
  - ERYTHEMA [None]
  - PRURITUS [None]
  - PRURITUS GENERALISED [None]
  - URTICARIA [None]
